FAERS Safety Report 16934452 (Version 2)
Quarter: 2019Q4

REPORT INFORMATION
  Report Type: Report from Study
  Country: DE (occurrence: DE)
  Receive Date: 20191018
  Receipt Date: 20191126
  Transmission Date: 20200122
  Serious: Yes (Other)
  Sender: FDA-Public Use
  Company Number: PHHY2019DE158909

PATIENT
  Sex: Female
  Weight: 56 kg

DRUGS (1)
  1. TASIGNA [Suspect]
     Active Substance: NILOTINIB
     Indication: CHRONIC MYELOID LEUKAEMIA
     Dosage: 600 MG, QD
     Route: 048
     Dates: start: 20190404, end: 20190923

REACTIONS (7)
  - Optic discs blurred [Unknown]
  - Optic disc disorder [Unknown]
  - Vitamin B12 deficiency [Recovering/Resolving]
  - Visual impairment [Recovered/Resolved]
  - Night sweats [Not Recovered/Not Resolved]
  - Fatigue [Not Recovered/Not Resolved]
  - Folate deficiency [Recovering/Resolving]

NARRATIVE: CASE EVENT DATE: 20190423
